FAERS Safety Report 8060021-7 (Version None)
Quarter: 2012Q1

REPORT INFORMATION
  Report Type: 
  Country: None (occurrence: None)
  Receive Date: 20120120
  Receipt Date: 20120116
  Transmission Date: 20120608
  Serious: Yes (Death, Other)
  Sender: FDA-Public Use
  Company Number: PHHY2012UY003636

PATIENT
  Age: 75 Year
  Sex: Female

DRUGS (8)
  1. DEXAMETHASONE [Concomitant]
     Dosage: 16 MG, QD
  2. METHADONE HCL [Suspect]
     Indication: PAIN
     Dosage: 35 MG, QD
  3. BISACODYL [Concomitant]
     Dosage: 10 MG, QD
  4. ACETAMINOPHEN [Concomitant]
     Indication: PAIN
     Dosage: 975 MG, QD
  5. MORPHINE [Suspect]
     Indication: PAIN
     Dosage: 280 MG, QD
  6. MORPHINE [Suspect]
     Dosage: 90 MG, QD
  7. METHADONE HCL [Suspect]
     Dosage: 70 MG, QD
  8. LAXATIVE [Concomitant]
     Dosage: 40 ML, QD

REACTIONS (18)
  - DEATH [None]
  - FATIGUE [None]
  - BLOOD CREATININE INCREASED [None]
  - GENERAL PHYSICAL HEALTH DETERIORATION [None]
  - ILEUS PARALYTIC [None]
  - COGNITIVE DISORDER [None]
  - ELECTROLYTE IMBALANCE [None]
  - DECREASED APPETITE [None]
  - GASTRIC ATONY [None]
  - GASTROINTESTINAL DISORDER [None]
  - ABDOMINAL DISCOMFORT [None]
  - NAUSEA [None]
  - DEHYDRATION [None]
  - PAIN [None]
  - ABDOMINAL DISTENSION [None]
  - WEIGHT DECREASED [None]
  - ABDOMINAL TENDERNESS [None]
  - CONSTIPATION [None]
